FAERS Safety Report 9511454 (Version 1)
Quarter: 2013Q1

REPORT INFORMATION
  Report Type: Spontaneous
  Country: US (occurrence: None)
  Receive Date: 20130305
  Receipt Date: 20130305
  Transmission Date: 20140127
  Serious: Yes (Hospitalization)
  Sender: FDA-Public Use
  Company Number: 163-21880-12103343

PATIENT
  Age: 81 Year
  Sex: Male
  Weight: 96.16 kg

DRUGS (9)
  1. REVLIMID [Suspect]
     Indication: PLASMA CELL MYELOMA
     Dosage: 25 MG, 21 IN 28 D, PO
     Route: 048
     Dates: start: 201208
  2. CARVEDILOL (CARVEDILOL) [Concomitant]
  3. ACTOS [Concomitant]
  4. IRON (IRON) [Concomitant]
  5. LASIX (FUROSEMIDE) [Concomitant]
  6. LISINOPRIL (LISINOPRIL) [Concomitant]
  7. NEPHRO-VITE [Concomitant]
  8. PANTOPRAZOLE (PANTOPRAZOLE) [Concomitant]
  9. SIMVASTATIN (SIMVASTATIN) [Concomitant]

REACTIONS (1)
  - Pulmonary thrombosis [None]
